FAERS Safety Report 23106377 (Version 1)
Quarter: 2023Q4

REPORT INFORMATION
  Report Type: Spontaneous
  Country: GR (occurrence: GR)
  Receive Date: 20231025
  Receipt Date: 20231025
  Transmission Date: 20240110
  Serious: Yes (Hospitalization)
  Sender: FDA-Public Use
  Company Number: GR-ROCHE-3226544

PATIENT
  Age: 61 Year
  Sex: Male
  Weight: 86 kg

DRUGS (3)
  1. NINTEDANIB [Suspect]
     Active Substance: NINTEDANIB
     Indication: Idiopathic pulmonary fibrosis
     Dosage: ON 32/OCT/2022, HE RECEIVED MOST RECENT DOSE OF STUDY DRUG PRIOR TO AE
     Route: 048
     Dates: start: 202204
  2. PIRFENIDONE [Suspect]
     Active Substance: PIRFENIDONE
     Indication: Idiopathic pulmonary fibrosis
     Dosage: ON 31/OCT/2022, HE RECEIVED THE MOST RECENT DOSE (150MG) PRIOR TO AE
     Route: 048
  3. ZAKODIAN PLUS [Concomitant]
     Indication: Hypertension
     Dosage: 332.500MG
     Route: 065
     Dates: start: 2020

REACTIONS (1)
  - Back pain [Recovered/Resolved]

NARRATIVE: CASE EVENT DATE: 20221031
